FAERS Safety Report 9346809 (Version 3)
Quarter: 2013Q4

REPORT INFORMATION
  Report Type: Report from Study
  Country: ES (occurrence: ES)
  Receive Date: 20130613
  Receipt Date: 20131220
  Transmission Date: 20140711
  Serious: Yes (Death, Hospitalization, Other)
  Sender: FDA-Public Use
  Company Number: ES-ROCHE-1217899

PATIENT
  Age: 58 Year
  Sex: Female

DRUGS (21)
  1. METHOXY POLYETHYLENE GLYCOL-EPOETIN BETA [Suspect]
     Indication: NEPHROGENIC ANAEMIA
     Dosage: LAST DOSE PRIOR TO SAE: 04/APR/2013.
     Route: 058
     Dates: start: 20100705
  2. MYCOPHENOLATE MOFETIL [Suspect]
     Indication: PRODUCT USED FOR UNKNOWN INDICATION
     Route: 065
     Dates: start: 201303, end: 20130501
  3. MYCOPHENOLATE MOFETIL [Suspect]
     Route: 065
     Dates: start: 201303, end: 20130429
  4. DACORTIN [Concomitant]
     Route: 065
     Dates: start: 20110805
  5. DACORTIN [Concomitant]
     Route: 065
     Dates: start: 20110825
  6. FUROSEMIDE [Concomitant]
     Route: 065
     Dates: start: 2007, end: 2012
  7. FUROSEMIDE [Concomitant]
     Route: 065
     Dates: start: 20111104
  8. ENALAPRIL [Concomitant]
     Route: 065
     Dates: start: 20121004
  9. ENALAPRIL [Concomitant]
     Route: 065
     Dates: start: 20121004
  10. OMEPRAZOLE [Concomitant]
     Route: 065
     Dates: start: 20110805
  11. ATORVASTATIN [Concomitant]
     Route: 065
     Dates: start: 20110805
  12. PROFER (SPAIN) [Concomitant]
     Route: 065
     Dates: start: 20121004
  13. MIMPARA [Concomitant]
     Route: 065
     Dates: start: 20121004
  14. MASTICAL [Concomitant]
     Route: 065
     Dates: start: 20121202
  15. SEGURIL [Concomitant]
     Route: 065
     Dates: start: 20111104
  16. SINTROM [Concomitant]
  17. BICARBONATO [Concomitant]
     Route: 065
     Dates: start: 20110805
  18. CINACALCET HYDROCHLORIDE [Concomitant]
     Route: 065
     Dates: start: 20121004
  19. SODIUM BICARBONATE [Concomitant]
     Route: 065
     Dates: start: 20110805
  20. ACENOCUMARIN [Concomitant]
     Route: 065
     Dates: end: 20130408
  21. PREDNISONE [Concomitant]
     Route: 065
     Dates: start: 20110805

REACTIONS (6)
  - Sepsis [Fatal]
  - Hypotension [Recovered/Resolved]
  - Peripheral sensorimotor neuropathy [Not Recovered/Not Resolved]
  - Diarrhoea [Recovered/Resolved]
  - Anal ulcer [Recovered/Resolved]
  - Infection [Not Recovered/Not Resolved]
